FAERS Safety Report 8222967-6 (Version None)
Quarter: 2012Q1

REPORT INFORMATION
  Report Type: 
  Country: None (occurrence: None)
  Receive Date: 20120320
  Receipt Date: 20120312
  Transmission Date: 20120608
  Serious: Yes (Hospitalization, Disabling, Other)
  Sender: FDA-Public Use
  Company Number: US-MERCK-1110USA01950

PATIENT
  Age: 54 Year
  Sex: Female
  Weight: 73 kg

DRUGS (8)
  1. FOSAMAX [Suspect]
     Route: 048
     Dates: start: 20030113, end: 20080501
  2. FOSAMAX [Suspect]
     Route: 048
     Dates: start: 20030101, end: 20071101
  3. ALENDRONATE SODIUM [Suspect]
     Indication: OSTEOPOROSIS
     Route: 048
     Dates: start: 20080829, end: 20090401
  4. FOSAMAX [Suspect]
     Route: 048
     Dates: start: 20030101, end: 20071101
  5. FOSAMAX [Suspect]
     Indication: OSTEOPOROSIS
     Route: 048
     Dates: start: 20010430, end: 20020101
  6. CORTICOSTEROIDS (UNSPECIFIED) [Concomitant]
     Route: 048
     Dates: start: 19890101
  7. FOSAMAX [Suspect]
     Indication: OSTEOPENIA
     Route: 048
     Dates: start: 20010430, end: 20020101
  8. FOSAMAX [Suspect]
     Route: 048
     Dates: start: 20030113, end: 20080501

REACTIONS (36)
  - FAECALOMA [None]
  - WEIGHT INCREASED [None]
  - URINARY INCONTINENCE [None]
  - SINUSITIS [None]
  - TYPE V HYPERLIPIDAEMIA [None]
  - PNEUMONIA [None]
  - FALL [None]
  - CORNEAL DYSTROPHY [None]
  - DEVICE CONNECTION ISSUE [None]
  - INTERVERTEBRAL DISC DEGENERATION [None]
  - ROTATOR CUFF SYNDROME [None]
  - RESPIRATORY TRACT INFECTION [None]
  - HIATUS HERNIA [None]
  - CHRONIC OBSTRUCTIVE PULMONARY DISEASE [None]
  - CELLULITIS [None]
  - RENAL FAILURE [None]
  - HYPERCHOLESTEROLAEMIA [None]
  - BLOOD CALCIUM INCREASED [None]
  - ADRENAL INSUFFICIENCY [None]
  - OSTEONECROSIS OF JAW [None]
  - URINARY TRACT INFECTION [None]
  - ANAEMIA POSTOPERATIVE [None]
  - DIZZINESS POSTURAL [None]
  - POSTOPERATIVE ILEUS [None]
  - SEDATION [None]
  - LOW TURNOVER OSTEOPATHY [None]
  - HIP FRACTURE [None]
  - LUMBAR RADICULOPATHY [None]
  - HYPONATRAEMIA [None]
  - HYPERSENSITIVITY [None]
  - FEMUR FRACTURE [None]
  - CONSTIPATION [None]
  - URINARY RETENTION [None]
  - MALNUTRITION [None]
  - INADEQUATE ANALGESIA [None]
  - FRACTURE NONUNION [None]
